FAERS Safety Report 9832835 (Version 2)
Quarter: 2014Q1

REPORT INFORMATION
  Report Type: Spontaneous
  Country: US (occurrence: US)
  Receive Date: 20140121
  Receipt Date: 20140121
  Transmission Date: 20141002
  Serious: Yes (Hospitalization)
  Sender: FDA-Public Use
  Company Number: US-B.I. PHARMACEUTICALS,INC./RIDGEFIELD-2013-BI-23035BP

PATIENT
  Age: 67 Year
  Sex: Male
  Weight: 95.25 kg

DRUGS (15)
  1. PRADAXA [Suspect]
     Indication: ATRIAL FIBRILLATION
     Dosage: 300 MG
     Route: 048
     Dates: start: 20121008, end: 20130130
  2. TAMSULOSIN [Concomitant]
     Dosage: 0.4 MG
     Route: 048
  3. LISINOPRIL [Concomitant]
     Dosage: 40 MG
     Route: 048
  4. GABAPENTIN [Concomitant]
     Dosage: 300 MG
     Route: 048
  5. NEXIUM [Concomitant]
     Dosage: 40 MG
     Route: 048
  6. THIAMINE [Concomitant]
     Dosage: 100 MG
     Route: 048
  7. FOLIC ACID [Concomitant]
     Dosage: 1 MG
     Route: 048
  8. METOPROLOL [Concomitant]
     Dosage: 200 MG
     Route: 048
  9. GLUCOTROL XL [Concomitant]
     Dosage: 20 MG
     Route: 048
  10. NIFEDIPINE [Concomitant]
     Dosage: 30 MG
     Route: 048
  11. SIMVASTATIN [Concomitant]
     Route: 048
  12. ISOSORBIDE MONONITRATE [Concomitant]
     Dosage: 30 MG
     Route: 048
  13. ACTOS [Concomitant]
     Dosage: 30 MG
     Route: 048
  14. FUROSEMIDE [Concomitant]
     Dosage: 60 MG
     Route: 048
  15. METFORMIN [Concomitant]
     Dosage: 60 MG
     Route: 048

REACTIONS (1)
  - Subdural haematoma [Unknown]
